FAERS Safety Report 7423018-3 (Version None)
Quarter: 2011Q2

REPORT INFORMATION
  Report Type: 
  Country: None (occurrence: None)
  Receive Date: 20110419
  Receipt Date: 20110418
  Transmission Date: 20111010
  Serious: Yes (Life-Threatening, Hospitalization, Other)
  Sender: FDA-Public Use
  Company Number: US-PFIZER INC-2011084524

PATIENT
  Age: 35 Year
  Sex: Female
  Weight: 73 kg

DRUGS (1)
  1. ZOLOFT [Suspect]
     Indication: DEPRESSION
     Dosage: UNK
     Route: 048

REACTIONS (4)
  - BLOOD ALCOHOL INCREASED [None]
  - SUICIDE ATTEMPT [None]
  - COMA [None]
  - INTENTIONAL OVERDOSE [None]
